FAERS Safety Report 7557277-3 (Version None)
Quarter: 2011Q2

REPORT INFORMATION
  Report Type: 
  Country: None (occurrence: None)
  Receive Date: 20110620
  Receipt Date: 20080320
  Transmission Date: 20111010
  Serious: Yes (Death, Other)
  Sender: FDA-Public Use
  Company Number: PHHY2008AT03617

PATIENT
  Sex: Female

DRUGS (10)
  1. FEMARA [Suspect]
     Indication: BREAST CANCER
     Dosage: UNK
     Dates: start: 20030325
  2. LESCOL [Suspect]
     Indication: HYPERLIPIDAEMIA
     Dosage: 80 MG, QD
  3. ZOFRAN [Concomitant]
     Indication: NAUSEA
     Dosage: 4 MG/DAY
  4. CAL-D-VITA [Concomitant]
     Indication: METASTASES TO BONE
     Dosage: 1 DF, UNK
  5. ASPIRIN [Concomitant]
     Indication: CORONARY ARTERY DISEASE
     Dosage: 100 MG, QD
  6. NEXIUM [Concomitant]
     Dosage: 20 MG, QD
  7. SERTRALINE HYDROCHLORIDE [Concomitant]
     Indication: DEPRESSION
     Dosage: 50 MG, QD
  8. PRAXITEN SP [Concomitant]
     Indication: DEPRESSION
     Dosage: 15 MG/DAY
  9. BISPHOSPHONATES [Concomitant]
     Indication: METASTASES TO BONE
     Route: 042
  10. DURAGESIC-100 [Concomitant]
     Indication: PAIN
     Dosage: 25 MG/DAY
     Route: 062

REACTIONS (2)
  - NEOPLASM MALIGNANT [None]
  - JAUNDICE [None]
